FAERS Safety Report 20910581 (Version 1)
Quarter: 2022Q2

REPORT INFORMATION
  Report Type: Spontaneous
  Country: US (occurrence: None)
  Receive Date: 20220602
  Receipt Date: 20220602
  Transmission Date: 20220720
  Serious: Yes (Hospitalization)
  Sender: FDA-Public Use
  Company Number: None

PATIENT
  Age: 76 Year
  Sex: Male

DRUGS (1)
  1. SILDENAFIL CITRATE [Suspect]
     Active Substance: SILDENAFIL CITRATE
     Indication: Pulmonary arterial hypertension
     Dosage: 20 MG THREE TIMES DAILY  ORAL?
     Route: 048
     Dates: start: 20220110

REACTIONS (3)
  - Loss of consciousness [None]
  - Dehydration [None]
  - Renal impairment [None]

NARRATIVE: CASE EVENT DATE: 20220523
